FAERS Safety Report 23483235 (Version 3)
Quarter: 2024Q1

REPORT INFORMATION
  Report Type: Spontaneous
  Country: US (occurrence: US)
  Receive Date: 20240205
  Receipt Date: 20240314
  Transmission Date: 20240410
  Serious: Yes (Other)
  Sender: FDA-Public Use
  Company Number: US-PFIZER INC-202200340039

PATIENT
  Age: 88 Year
  Sex: Male
  Weight: 74.84 kg

DRUGS (1)
  1. VYNDAMAX [Suspect]
     Active Substance: TAFAMIDIS
     Indication: Acquired ATTR amyloidosis
     Dosage: 61MG 1 CAPSULE BY MOUTH DAILY
     Route: 048

REACTIONS (3)
  - Blindness [Not Recovered/Not Resolved]
  - Body height decreased [Unknown]
  - Loss of personal independence in daily activities [Unknown]
